FAERS Safety Report 8848026 (Version 1)
Quarter: 2012Q4

REPORT INFORMATION
  Report Type: 
  Country: FR (occurrence: FR)
  Receive Date: 20121018
  Receipt Date: 20121018
  Transmission Date: 20130627
  Serious: Yes (Hospitalization, Other)
  Sender: FDA-Public Use
  Company Number: FR-PFIZER INC-2012255700

PATIENT
  Age: 30 Year
  Sex: Female

DRUGS (6)
  1. CHAMPIX [Suspect]
     Indication: EX-TOBACCO USER
     Dosage: 0.5 mg, 1x/day
     Route: 048
     Dates: start: 20120803, end: 20120805
  2. CHAMPIX [Suspect]
     Dosage: 0.5 mg, 2x/day
     Route: 048
     Dates: start: 20120806, end: 20120808
  3. CHAMPIX [Suspect]
     Dosage: 1 mg, 2x/day
     Route: 048
     Dates: start: 20120812
  4. CHAMPIX [Suspect]
     Dosage: 1 mg daily
     Route: 048
     Dates: start: 20120819, end: 201208
  5. PROFENID [Suspect]
     Indication: HEADACHE
     Dosage: 50 mg, 3x/day
     Route: 048
     Dates: start: 20120808, end: 20120821
  6. MOPRAL [Suspect]
     Dosage: UNK
     Route: 048
     Dates: start: 20120808, end: 20120821

REACTIONS (4)
  - Paraesthesia [Recovered/Resolved]
  - Aphasia [Recovered/Resolved]
  - Meningitis aseptic [Unknown]
  - Headache [Unknown]
